FAERS Safety Report 11538692 (Version 3)
Quarter: 2015Q4

REPORT INFORMATION
  Report Type: Spontaneous
  Country: MX (occurrence: None)
  Receive Date: 20150921
  Receipt Date: 20151102
  Transmission Date: 20160304
  Serious: Yes (Hospitalization, Other)
  Sender: FDA-Public Use
  Company Number: 2015MX0526

PATIENT
  Age: 1 Year
  Sex: Male

DRUGS (1)
  1. ORFADIN [Suspect]
     Active Substance: NITISINONE
     Indication: TYROSINAEMIA
     Dosage: 7 MG DAILY ( 7 MG, 1 IN 1 D)
     Dates: start: 20141212

REACTIONS (6)
  - Acute hepatic failure [None]
  - Coagulation test abnormal [None]
  - Ascites [None]
  - Pyrexia [None]
  - Respiratory distress [None]
  - Hepatocellular carcinoma [None]

NARRATIVE: CASE EVENT DATE: 20150901
